FAERS Safety Report 4622736-X (Version None)
Quarter: 2005Q1

REPORT INFORMATION
  Report Type: 
  Country: None (occurrence: None)
  Receive Date: 20050329
  Receipt Date: 20050329
  Transmission Date: 20050727
  Serious: Yes (Other)
  Sender: FDA-Public Use
  Company Number: None

PATIENT
  Sex: Male
  Weight: 58 kg

DRUGS (7)
  1. GEMCITABINE [Suspect]
     Dosage: 1500 MG/M2 IV OVER 150 MIN. Q WK. X 3 EVERY 4 WEEKS
     Route: 042
     Dates: start: 20041014
  2. GLYBURIDE [Concomitant]
  3. PEPCID [Concomitant]
  4. AMIODARONE [Concomitant]
  5. ASPIRIN [Concomitant]
  6. DIGOXIN [Concomitant]
  7. METOPROLOL TARTRATE [Concomitant]

REACTIONS (9)
  - BLOOD ALKALINE PHOSPHATASE INCREASED [None]
  - BLOOD CALCIUM DECREASED [None]
  - BLOOD POTASSIUM INCREASED [None]
  - BLOOD SODIUM DECREASED [None]
  - CONDITION AGGRAVATED [None]
  - CONFUSIONAL STATE [None]
  - METASTASES TO LUNG [None]
  - PANCREATIC CARCINOMA [None]
  - SPEECH DISORDER [None]
